FAERS Safety Report 6085988-8 (Version None)
Quarter: 2009Q1

REPORT INFORMATION
  Report Type: 
  Country: None (occurrence: None)
  Receive Date: 20090218
  Receipt Date: 20090218
  Transmission Date: 20090719
  Serious: Yes (Hospitalization)
  Sender: FDA-Public Use
  Company Number: None

PATIENT
  Sex: Male
  Weight: 85.7298 kg

DRUGS (2)
  1. VELCADE [Suspect]
     Indication: ADENOID CYSTIC CARCINOMA
     Dosage: 1.3/MG/M2 TWICE WEEKLY IV BOLUS
     Route: 040
     Dates: start: 20081216, end: 20090206
  2. ADRIAMYCIN PFS [Suspect]
     Dosage: 20MG/M2 ONCE WEEKLY IV BOLUS
     Route: 040
     Dates: start: 20081216, end: 20090206

REACTIONS (3)
  - HYPOTENSION [None]
  - ILEUS [None]
  - PLATELET COUNT DECREASED [None]
